FAERS Safety Report 8202465-6 (Version None)
Quarter: 2012Q1

REPORT INFORMATION
  Report Type: 
  Country: None (occurrence: None)
  Receive Date: 20120312
  Receipt Date: 20120209
  Transmission Date: 20120608
  Serious: No
  Sender: FDA-Public Use
  Company Number: US-ABBOTT-12P-163-0897878-00

PATIENT
  Sex: Female
  Weight: 80.812 kg

DRUGS (12)
  1. CELEXA [Concomitant]
     Indication: BIPOLAR DISORDER
     Dosage: ONE IN THE MORNING
     Dates: start: 20050101
  2. STATIN DRUG [Concomitant]
     Indication: BLOOD CHOLESTEROL INCREASED
  3. BIRTH CONTROL [Concomitant]
     Indication: PRODUCT USED FOR UNKNOWN INDICATION
  4. MULTI-VITAMINS [Concomitant]
     Indication: PRODUCT USED FOR UNKNOWN INDICATION
  5. DEPAKOTE [Suspect]
     Dosage: DOSE INCREASED BY 500MG/DAY
     Dates: start: 20090101, end: 20090101
  6. FISH OIL [Concomitant]
     Indication: PRODUCT USED FOR UNKNOWN INDICATION
  7. STOOL SOFTENER [Concomitant]
     Indication: PRODUCT USED FOR UNKNOWN INDICATION
  8. DEPAKOTE [Suspect]
     Dosage: UNKNOWN DOSE
     Dates: start: 20060101, end: 20090101
  9. LEVOTHYROXINE SODIUM [Concomitant]
     Indication: THYROID DISORDER
  10. DEPAKOTE [Suspect]
     Dosage: DOSE INCREASED BY 500MG/DAY
     Dates: start: 20090101
  11. DEPAKOTE [Suspect]
     Indication: BIPOLAR DISORDER
     Dosage: 2 TABS IN THE MORNING 3 TABS AT NIGHT
  12. SEROQUEL [Concomitant]
     Indication: BIPOLAR DISORDER
     Dosage: 1 IN MORNING AND ONE AT BEDTIME
     Dates: start: 20050101

REACTIONS (3)
  - ABNORMAL BEHAVIOUR [None]
  - DRUG LEVEL FLUCTUATING [None]
  - FATIGUE [None]
